FAERS Safety Report 11199364 (Version 1)
Quarter: 2015Q2

REPORT INFORMATION
  Report Type: Spontaneous
  Country: FR (occurrence: None)
  Receive Date: 20150616
  Receipt Date: 20150616
  Transmission Date: 20150821
  Serious: Yes (Hospitalization)
  Sender: FDA-Public Use
  Company Number: FR-H14001-15-00934

PATIENT
  Age: 66 Year
  Sex: Male
  Weight: 63.5 kg

DRUGS (9)
  1. PRIMPERAN [Concomitant]
     Active Substance: METOCLOPRAMIDE HYDROCHLORIDE
  2. ARACYTINE [Suspect]
     Active Substance: CYTARABINE
     Indication: ACUTE MYELOID LEUKAEMIA
     Dosage: NOT OTHERWISE SPECIFIED
     Route: 042
     Dates: start: 2010, end: 2010
  3. LOXEN [Concomitant]
     Active Substance: NICARDIPINE HYDROCHLORIDE
  4. CERUBIDIN [Suspect]
     Active Substance: DAUNORUBICIN
     Indication: ACUTE MYELOID LEUKAEMIA
     Dosage: NOT OTHEWISE SPECIFIED
     Route: 042
     Dates: start: 2010, end: 2010
  5. TRANXENE T-TAB [Concomitant]
     Active Substance: CLORAZEPATE DIPOTASSIUM
  6. ART 50 [Concomitant]
     Active Substance: DIACEREIN
  7. COVERSYL (PERINDOPRIL ERBUMINE) [Concomitant]
     Active Substance: PERINDOPRIL
  8. GEMTUZUMAB OZOGAMICIN [Suspect]
     Active Substance: GEMTUZUMAB OZOGAMICIN
     Indication: ACUTE MYELOID LEUKAEMIA
     Route: 041
     Dates: start: 2010, end: 2010
  9. FLAGYL [Concomitant]
     Active Substance: METRONIDAZOLE\METRONIDAZOLE HYDROCHLORIDE

REACTIONS (2)
  - Lung consolidation [None]
  - Pneumonia [None]

NARRATIVE: CASE EVENT DATE: 201005
